FAERS Safety Report 15997890 (Version 2)
Quarter: 2019Q3

REPORT INFORMATION
  Report Type: Report from Study
  Country: JP (occurrence: JP)
  Receive Date: 20190222
  Receipt Date: 20190718
  Transmission Date: 20191004
  Serious: Yes (Death, Hospitalization)
  Sender: FDA-Public Use
  Company Number: JP-ACTELION-A-US2019-186778

PATIENT
  Age: 64 Year
  Sex: Male

DRUGS (4)
  1. VENTAVIS [Suspect]
     Active Substance: ILOPROST
     Dosage: 5 MCG 6X/DAILY
     Route: 055
     Dates: start: 201712, end: 201808
  2. OXYGEN. [Concomitant]
     Active Substance: OXYGEN
     Dosage: UNK
     Dates: start: 20150710, end: 201712
  3. VENTAVIS [Suspect]
     Active Substance: ILOPROST
     Indication: PULMONARY ARTERIAL HYPERTENSION
     Dosage: 5 MCG, 7X/DAILY
     Route: 055
  4. ADEMPAS [Suspect]
     Active Substance: RIOCIGUAT
     Indication: PULMONARY ARTERIAL HYPERTENSION
     Dosage: UNK
     Route: 048
     Dates: start: 20150709, end: 20181228

REACTIONS (2)
  - Dyspnoea exertional [Not Recovered/Not Resolved]
  - Dyspnoea [Fatal]

NARRATIVE: CASE EVENT DATE: 20171201
